FAERS Safety Report 9400109 (Version 1)
Quarter: 2013Q3

REPORT INFORMATION
  Report Type: Spontaneous
  Country: FR (occurrence: FR)
  Receive Date: 20130715
  Receipt Date: 20130715
  Transmission Date: 20140515
  Serious: Yes (Hospitalization, Other)
  Sender: FDA-Public Use
  Company Number: FR-NOVOPROD-382733

PATIENT
  Age: 36 Year
  Sex: Female

DRUGS (2)
  1. NOVOSEVEN [Suspect]
     Indication: POSTPARTUM HAEMORRHAGE
     Dosage: UNKNOWN
     Route: 042
     Dates: start: 20110523, end: 20110523
  2. EXACYL [Suspect]
     Indication: POSTPARTUM HAEMORRHAGE
     Dosage: UNKNOWN
     Route: 065
     Dates: start: 20110523, end: 20110523

REACTIONS (2)
  - Renal cortical necrosis [Unknown]
  - Disseminated intravascular coagulation [Recovered/Resolved]
